FAERS Safety Report 19508527 (Version 1)
Quarter: 2021Q3

REPORT INFORMATION
  Report Type: Spontaneous
  Country: CN (occurrence: CN)
  Receive Date: 20210708
  Receipt Date: 20210708
  Transmission Date: 20211014
  Serious: Yes (Other)
  Sender: FDA-Public Use
  Company Number: CN-PFIZER INC-2021777242

PATIENT
  Age: 12 Month
  Sex: Male
  Weight: 11.7 kg

DRUGS (1)
  1. METHYLPREDNISOLONE. [Suspect]
     Active Substance: METHYLPREDNISOLONE
     Indication: NEPHROTIC SYNDROME
     Dosage: 6 MG, 3X/DAY
     Route: 048
     Dates: start: 20210618, end: 20210622

REACTIONS (1)
  - Infantile vomiting [Recovering/Resolving]

NARRATIVE: CASE EVENT DATE: 20210618
